FAERS Safety Report 18863630 (Version 2)
Quarter: 2021Q1

REPORT INFORMATION
  Report Type: Report from Study
  Country: None (occurrence: CA)
  Receive Date: 20210208
  Receipt Date: 20210208
  Transmission Date: 20210420
  Serious: Yes (Other)
  Sender: FDA-Public Use
  Company Number: CA-ABBVIE-21K-028-3761287-00

PATIENT
  Age: 66 Year
  Sex: Male

DRUGS (1)
  1. LUPRON DEPOT [Suspect]
     Active Substance: LEUPROLIDE ACETATE
     Indication: PROSTATE CANCER
     Route: 030
     Dates: start: 20190915

REACTIONS (2)
  - Dermatitis contact [Not Recovered/Not Resolved]
  - Heart valve replacement [Not Recovered/Not Resolved]

NARRATIVE: CASE EVENT DATE: 202012
